FAERS Safety Report 11221112 (Version 1)
Quarter: 2015Q2

REPORT INFORMATION
  Report Type: Spontaneous
  Country: KR (occurrence: KR)
  Receive Date: 20150626
  Receipt Date: 20150626
  Transmission Date: 20150821
  Serious: Yes (Other)
  Sender: FDA-Public Use
  Company Number: KR-MALLINCKRODT-T201503123

PATIENT
  Age: 58 Year
  Sex: Female

DRUGS (2)
  1. SODIUM IODIDE (I 131) CAPSULES T [Suspect]
     Active Substance: SODIUM IODIDE I-131
     Dosage: 250 MCI, SINGLE
     Route: 065
  2. SODIUM IODIDE (I 131) CAPSULES T [Suspect]
     Active Substance: SODIUM IODIDE I-131
     Indication: RADIOACTIVE IODINE THERAPY
     Dosage: 250 MCI, SINGLE
     Route: 065

REACTIONS (1)
  - Aplastic anaemia [Unknown]
